FAERS Safety Report 9774451 (Version 1)
Quarter: 2013Q4

REPORT INFORMATION
  Report Type: Spontaneous
  Country: US (occurrence: US)
  Receive Date: 20131220
  Receipt Date: 20131220
  Transmission Date: 20140711
  Serious: Yes (Other)
  Sender: FDA-Public Use
  Company Number: US-PAR PHARMACEUTICAL, INC-2013SCPR007821

PATIENT
  Sex: 0

DRUGS (5)
  1. DIVALPROEX SODIUM ER TABLETS [Suspect]
     Indication: BIPOLAR DISORDER
     Dosage: 3 DF, HS
     Route: 065
  2. WELLBUTRIN [Concomitant]
     Indication: PRODUCT USED FOR UNKNOWN INDICATION
     Dosage: 300 MG, HS
     Route: 065
     Dates: start: 199607
  3. ASTEPRO [Concomitant]
     Indication: PRODUCT USED FOR UNKNOWN INDICATION
     Dosage: 2 SPR, HS, ONE PUFF PER NOSTRIL
     Route: 045
     Dates: start: 2007
  4. MULTIVITAMIN                       /00097801/ [Concomitant]
     Indication: PRODUCT USED FOR UNKNOWN INDICATION
     Dosage: UNK, / DAY
     Route: 048
     Dates: start: 2011
  5. CALCIUM + VITAMIN D                /01483701/ [Concomitant]
     Indication: PRODUCT USED FOR UNKNOWN INDICATION
     Dosage: UNK, UNKNOWN
     Route: 048
     Dates: start: 2011

REACTIONS (3)
  - Choking [Unknown]
  - Dyspnoea [Unknown]
  - Dysphagia [Unknown]
